FAERS Safety Report 4738695-5 (Version None)
Quarter: 2005Q3

REPORT INFORMATION
  Report Type: 
  Country: None (occurrence: None)
  Receive Date: 20050809
  Receipt Date: 20050809
  Transmission Date: 20060218
  Serious: Yes (Life-Threatening, Hospitalization, Disabling)
  Sender: FDA-Public Use
  Company Number: None

PATIENT
  Sex: Male
  Weight: 136.0791 kg

DRUGS (17)
  1. ZYPREXA [Suspect]
     Indication: ANXIETY
     Dosage: 5 MG DAILY;  10 MG DAILY
     Dates: start: 20020219, end: 20040501
  2. ZYPREXA [Suspect]
     Indication: ANXIETY
     Dosage: 5 MG DAILY;  10 MG DAILY
     Dates: start: 20040501
  3. HYDROCODONE [Concomitant]
  4. DARVOCET [Concomitant]
  5. IBUPROFEN [Concomitant]
  6. METFORMIN [Concomitant]
  7. HUMULIN 70/30 [Concomitant]
  8. LISINOPRIL [Concomitant]
  9. PAXIL [Concomitant]
  10. CARBAMAZEPINE [Concomitant]
  11. RANITIDINE [Concomitant]
  12. ACCUPRIL [Concomitant]
  13. TRANXENE [Concomitant]
  14. NORVASC [Concomitant]
  15. DIAZEPAM [Concomitant]
  16. ALTACE [Concomitant]
  17. NAPROXEN [Concomitant]

REACTIONS (17)
  - ARTHRALGIA [None]
  - ASTHENIA [None]
  - BLINDNESS [None]
  - BLOOD PRESSURE INCREASED [None]
  - CARDIOVASCULAR DISORDER [None]
  - CONVULSION [None]
  - COUGH [None]
  - DEPRESSION [None]
  - DIABETES MELLITUS [None]
  - DIZZINESS [None]
  - HEPATITIS C [None]
  - PARALYSIS [None]
  - RASH [None]
  - RIB FRACTURE [None]
  - SUICIDE ATTEMPT [None]
  - WEIGHT INCREASED [None]
  - WHEELCHAIR USER [None]
